FAERS Safety Report 8052476-9 (Version None)
Quarter: 2012Q1

REPORT INFORMATION
  Report Type: 
  Country: None (occurrence: None)
  Receive Date: 20120118
  Receipt Date: 20120116
  Transmission Date: 20120608
  Serious: Yes (Life-Threatening, Other)
  Sender: FDA-Public Use
  Company Number: IT-PFIZER INC-2011066466

PATIENT
  Age: 62 Year
  Sex: Male

DRUGS (6)
  1. AUGMENTIN '125' [Suspect]
     Dosage: UNK
     Route: 048
     Dates: start: 20101207
  2. ASPIRIN [Concomitant]
  3. SPIRIVA [Concomitant]
  4. BRIVUDINE [Concomitant]
     Indication: HERPES ZOSTER
  5. ENALAPRIL MALEATE [Concomitant]
  6. LYRICA [Suspect]
     Dosage: 75 MG, UNK
     Dates: start: 20101207

REACTIONS (2)
  - ANAPHYLACTIC SHOCK [None]
  - DRUG HYPERSENSITIVITY [None]
